FAERS Safety Report 8916712 (Version 3)
Quarter: 2014Q2

REPORT INFORMATION
  Report Type: Spontaneous
  Country: US (occurrence: US)
  Receive Date: 20121120
  Receipt Date: 20140530
  Transmission Date: 20141212
  Serious: Yes (Hospitalization)
  Sender: FDA-Public Use
  Company Number: US-BAYER-2012-118956

PATIENT
  Age: 23 Year
  Sex: Female
  Weight: 58.96 kg

DRUGS (5)
  1. YAZ [Suspect]
     Indication: ACNE
     Dosage: UNK
     Dates: start: 20101019, end: 201108
  2. GIANVI [Suspect]
     Indication: ACNE
     Dosage: UNK
     Dates: start: 20101019, end: 201108
  3. LIDOCAINE [Concomitant]
     Route: 061
  4. FLONASE [Concomitant]
     Route: 045
  5. POTASSIUM CITRATE [POTASSIUM CITRATE] [Concomitant]
     Indication: RENAL LITHIASIS PROPHYLAXIS
     Dosage: UNK
     Dates: start: 200910, end: 201010

REACTIONS (10)
  - Cerebrovascular accident [None]
  - Paraesthesia [None]
  - Injury [None]
  - Pain [None]
  - Fear of disease [None]
  - Emotional distress [None]
  - Anhedonia [None]
  - Pain [None]
  - Sensory loss [None]
  - Hypoaesthesia [None]
